FAERS Safety Report 9108284 (Version 2)
Quarter: 2013Q2

REPORT INFORMATION
  Report Type: Spontaneous
  Country: US (occurrence: US)
  Receive Date: 20130222
  Receipt Date: 20130614
  Transmission Date: 20140414
  Serious: Yes (Hospitalization)
  Sender: FDA-Public Use
  Company Number: US-SHIRE-ALL1-2013-00936

PATIENT
  Age: 9 Year
  Sex: Female
  Weight: 24.04 kg

DRUGS (5)
  1. VYVANSE [Suspect]
     Indication: ATTENTION DEFICIT/HYPERACTIVITY DISORDER
     Dosage: 30 MG, 1X/DAY:QD
     Route: 048
     Dates: start: 20120412, end: 20130130
  2. VYVANSE [Suspect]
     Dosage: 30 MG, 1X/DAY:QD
     Route: 048
     Dates: start: 20130211
  3. VYVANSE [Suspect]
     Dosage: 20 MG, 1X/DAY:QD
     Route: 048
     Dates: start: 201006, end: 2012
  4. INTUNIV [Suspect]
     Indication: ATTENTION DEFICIT/HYPERACTIVITY DISORDER
     Dosage: 2 MG, 1X/DAY:QD
     Route: 048
     Dates: start: 20120412, end: 20130130
  5. INTUNIV [Suspect]
     Dosage: 1 MG, 1X/DAY:QD
     Route: 048
     Dates: start: 2012, end: 2012

REACTIONS (5)
  - Gastroenteritis viral [Unknown]
  - Dehydration [Unknown]
  - Heart rate increased [Unknown]
  - Vomiting [Unknown]
  - Blood pressure increased [Recovered/Resolved]
